FAERS Safety Report 6243247-4 (Version None)
Quarter: 2009Q2

REPORT INFORMATION
  Report Type: 
  Country: None (occurrence: None)
  Receive Date: 20090622
  Receipt Date: 20090622
  Transmission Date: 20091009
  Serious: Yes (Other)
  Sender: FDA-Public Use
  Company Number: None

PATIENT
  Age: 6 Year
  Sex: Female
  Weight: 21.7727 kg

DRUGS (2)
  1. SINGULAIR [Suspect]
     Indication: ASTHMA
     Dosage: ONE PILL ONCE A DAY PO
     Route: 048
     Dates: start: 20080401, end: 20090618
  2. SINGULAIR [Suspect]
     Indication: MULTIPLE ALLERGIES
     Dosage: ONE PILL ONCE A DAY PO
     Route: 048
     Dates: start: 20080401, end: 20090618

REACTIONS (3)
  - ABNORMAL DREAMS [None]
  - AGITATION [None]
  - HALLUCINATION [None]
